FAERS Safety Report 12327035 (Version 4)
Quarter: 2017Q1

REPORT INFORMATION
  Report Type: Spontaneous
  Country: US (occurrence: US)
  Receive Date: 20160503
  Receipt Date: 20170127
  Transmission Date: 20170428
  Serious: No
  Sender: FDA-Public Use
  Company Number: US-PFIZER INC-2016239164

PATIENT
  Age: 74 Year
  Sex: Male
  Weight: 111 kg

DRUGS (22)
  1. SUTENT [Suspect]
     Active Substance: SUNITINIB MALATE
     Dosage: 25 MG, CYCLIC (ONE DAILY FOR 4 WEEKS AND 2 WEEKS OFF)
     Route: 048
     Dates: start: 20150904
  2. PRILOSEC [Concomitant]
     Active Substance: OMEPRAZOLE MAGNESIUM
     Dosage: 20 MG, DAILY, (TAKE 1 CAPSULE DAILY)
     Route: 048
  3. PRILOSEC [Concomitant]
     Active Substance: OMEPRAZOLE MAGNESIUM
     Dosage: 20 MG, DAILY
     Dates: start: 201312
  4. METOPROLOL. [Concomitant]
     Active Substance: METOPROLOL
     Indication: HYPERTENSION
     Dosage: 25 MG, 1X/DAY
     Route: 048
     Dates: start: 201312
  5. NATEGLINIDE. [Concomitant]
     Active Substance: NATEGLINIDE
     Indication: BLOOD GLUCOSE ABNORMAL
     Dosage: 60 MG, 3X/DAY (BEFORE MEALS )
     Dates: start: 201607
  6. CALCIUM [Concomitant]
     Active Substance: CALCIUM
     Dosage: 500 MG, 3X/DAY
  7. COMBIGAN [Concomitant]
     Active Substance: BRIMONIDINE TARTRATE\TIMOLOL MALEATE
     Dosage: UNK, [BRIMONIDINE TARTRATE - 0.2 %]/[TIMOLOL MALEATE -0.5 %]
     Dates: start: 20141226
  8. SUTENT [Suspect]
     Active Substance: SUNITINIB MALATE
     Dosage: 25 MG, 1X/DAY
  9. METOPROLOL. [Concomitant]
     Active Substance: METOPROLOL
     Dosage: 25 MG, DAILY, (TAKE 1 TABLET BY MOUTH EVERY DAY)
     Route: 048
     Dates: start: 20141107
  10. ASPIRIN (E.C.) [Concomitant]
     Active Substance: ASPIRIN
     Dosage: 81 MG, UNK
     Route: 048
  11. SUTENT [Suspect]
     Active Substance: SUNITINIB MALATE
     Dosage: 25 MG, CYCLIC, (DAILY FOR 28 DAYS FOLLOWED BY 14 DAYS REST)
  12. SUTENT [Suspect]
     Active Substance: SUNITINIB MALATE
     Dosage: 25 MG, CYCLIC, (TAKE 1 CAPSULE DAILY FOR 4 WEEKS THEN OFF 2 WEEKS)
     Route: 048
     Dates: start: 20150826
  13. ATIVAN [Concomitant]
     Active Substance: LORAZEPAM
     Indication: INSOMNIA
     Dosage: 1 MG, AS NEEDED (ONE TABLET AT BEDTIME AS NEEDED)
     Dates: start: 201403
  14. MAGNESIUM [Concomitant]
     Active Substance: MAGNESIUM
     Dosage: 400 MG, 4X/DAY
     Dates: start: 201603
  15. ATIVAN [Concomitant]
     Active Substance: LORAZEPAM
     Indication: ANXIETY
  16. MAGNESIUM [Concomitant]
     Active Substance: MAGNESIUM
     Dosage: 400 MG, 4X/DAY, (TAKE 1 CAPSULE FOUR TIMES)
  17. NATEGLINIDE. [Concomitant]
     Active Substance: NATEGLINIDE
     Dosage: 60 MG, 3X/DAY, (TAKE ONE TABLET BY MOUTH THREE TIMES A DAY BEFORE MEALS)
     Route: 048
     Dates: start: 20161219
  18. LATANOPROST. [Concomitant]
     Active Substance: LATANOPROST
     Dosage: UNK
     Dates: start: 20140909
  19. GAS-X [Concomitant]
     Active Substance: DIMETHICONE
  20. SUTENT [Suspect]
     Active Substance: SUNITINIB MALATE
     Indication: RENAL CELL CARCINOMA
     Dosage: UNK
     Dates: start: 201509
  21. CALCITRIOL. [Concomitant]
     Active Substance: CALCITRIOL
     Dosage: 0.25 UG, UNK, (TAKE 1 TABLET ON MONDAY, WEDNESDAY, AND FRIDAY)
     Route: 048
     Dates: start: 20160802
  22. VITAMIN B12 [Concomitant]
     Active Substance: CYANOCOBALAMIN
     Dosage: 500 UG, DAILY, (TAKE 1 TABLET DAILY)
     Route: 048
     Dates: start: 20160607

REACTIONS (10)
  - Neoplasm progression [Unknown]
  - Diarrhoea [Unknown]
  - Drug dose omission [Unknown]
  - Circumstance or information capable of leading to medication error [Unknown]
  - Blood creatinine increased [Recovered/Resolved]
  - Fatigue [Unknown]
  - Flatulence [Unknown]
  - Abdominal distension [Unknown]
  - Oedema peripheral [Recovered/Resolved]
  - Increased tendency to bruise [Unknown]

NARRATIVE: CASE EVENT DATE: 201603
